FAERS Safety Report 7111850-5 (Version None)
Quarter: 2010Q4

REPORT INFORMATION
  Report Type: 
  Country: None (occurrence: None)
  Receive Date: 20101119
  Receipt Date: 20101115
  Transmission Date: 20110411
  Serious: No
  Sender: FDA-Public Use
  Company Number: US-BIOGENIDEC-2010BI019629

PATIENT
  Age: 54 Year
  Sex: Female

DRUGS (2)
  1. TYSABRI [Suspect]
     Indication: MULTIPLE SCLEROSIS
     Route: 042
     Dates: start: 20100304, end: 20100401
  2. TYSABRI [Suspect]
     Route: 042
     Dates: start: 20100924

REACTIONS (2)
  - DRUG SPECIFIC ANTIBODY PRESENT [None]
  - RASH PRURITIC [None]
